FAERS Safety Report 15075405 (Version 1)
Quarter: 2018Q2

REPORT INFORMATION
  Report Type: Spontaneous
  Country: US (occurrence: US)
  Receive Date: 20180627
  Receipt Date: 20180627
  Transmission Date: 20180711
  Serious: Yes (Other)
  Sender: FDA-Public Use
  Company Number: US-SAOL THERAPEUTICS-2017SAO01357

PATIENT
  Age: 41 Year
  Sex: Female

DRUGS (2)
  1. LIORESAL [Suspect]
     Active Substance: BACLOFEN
     Dosage: 799.5 ?G, \DAY
     Route: 037
     Dates: end: 20180402
  2. LIORESAL [Suspect]
     Active Substance: BACLOFEN
     Dosage: 600 ?G, \DAY
     Route: 037
     Dates: start: 20180402

REACTIONS (6)
  - Implant site extravasation [Recovered/Resolved]
  - Therapy non-responder [Recovered/Resolved]
  - Device damage [Recovered/Resolved]
  - Drug withdrawal syndrome [Recovered/Resolved]
  - Device leakage [Recovered/Resolved]
  - Device dislocation [Recovered/Resolved]

NARRATIVE: CASE EVENT DATE: 20170815
